FAERS Safety Report 23843578 (Version 1)
Quarter: 2024Q2

REPORT INFORMATION
  Report Type: Spontaneous
  Country: FR (occurrence: FR)
  Receive Date: 20240510
  Receipt Date: 20240510
  Transmission Date: 20240716
  Serious: Yes (Death, Life-Threatening)
  Sender: FDA-Public Use
  Company Number: None

PATIENT
  Age: 58 Year
  Sex: Male
  Weight: 96.6 kg

DRUGS (6)
  1. ALBUTEROL [Suspect]
     Active Substance: ALBUTEROL
     Indication: Asthma
     Route: 065
     Dates: end: 20240408
  2. AZELASTINE [Suspect]
     Active Substance: AZELASTINE\AZELASTINE HYDROCHLORIDE
     Indication: Asthma
     Route: 055
     Dates: end: 20240408
  3. RUPATADINE [Suspect]
     Active Substance: RUPATADINE
     Indication: Asthma
     Route: 048
     Dates: end: 20240408
  4. DUPIXENT [Suspect]
     Active Substance: DUPILUMAB
     Indication: Asthma
     Route: 058
     Dates: start: 202311, end: 20240404
  5. FLUTICASONE PROPIONATE [Suspect]
     Active Substance: FLUTICASONE PROPIONATE
     Indication: Asthma
     Route: 055
     Dates: end: 20240408
  6. BECLOMETHASONE DIPROPIONATE\FORMOTEROL FUMARATE\GLYCOPYRROLATE [Suspect]
     Active Substance: BECLOMETHASONE DIPROPIONATE\FORMOTEROL FUMARATE\GLYCOPYRROLATE
     Indication: Asthma
     Dosage: 172 MICROGRAMS/5 MICROGRAMS/9 MICROGRAMS, SOLUTION FOR INHALATION IN PRESSURIZED BOTTLE
     Route: 055
     Dates: end: 20240408

REACTIONS (1)
  - Capnocytophaga sepsis [Fatal]

NARRATIVE: CASE EVENT DATE: 20240405
